FAERS Safety Report 18650315 (Version 1)
Quarter: 2020Q4

REPORT INFORMATION
  Report Type: Spontaneous
  Country: IR (occurrence: IR)
  Receive Date: 20201222
  Receipt Date: 20201222
  Transmission Date: 20210114
  Serious: Yes (Other)
  Sender: FDA-Public Use
  Company Number: IR-ASTRAZENECA-2020SF72012

PATIENT
  Age: 28 Year
  Sex: Male

DRUGS (18)
  1. COLISTIMETHATE SODIUM. [Suspect]
     Active Substance: COLISTIMETHATE SODIUM
     Dosage: CMS AT A LOADING DOSE OF 9 MILLION UNITS, FOLLOWED BY DOSES OF 4.5 MILLION UNITS TWICE DAILY
     Route: 065
  2. HYDROCORTISONE. [Concomitant]
     Active Substance: HYDROCORTISONE
  3. LEVOFLOXACIN. [Suspect]
     Active Substance: LEVOFLOXACIN
     Route: 065
  4. COLISTIMETHATE SODIUM. [Suspect]
     Active Substance: COLISTIMETHATE SODIUM
     Dosage: CMS AT A LOADING DOSE OF 9 MILLION UNITS, FOLLOWED BY DOSES OF 4.5 MILLION UNITS TWICE DAILY
     Route: 065
  5. VANCOMYCIN [Suspect]
     Active Substance: VANCOMYCIN
     Route: 065
  6. METHADONE [Suspect]
     Active Substance: METHADONE HYDROCHLORIDE
     Route: 065
  7. GABAPENTIN. [Suspect]
     Active Substance: GABAPENTIN
     Route: 065
  8. FENTANYL. [Concomitant]
     Active Substance: FENTANYL
  9. MEROPENEM. [Suspect]
     Active Substance: MEROPENEM
     Route: 042
  10. THIOPENTAL [Concomitant]
     Active Substance: THIOPENTAL
  11. LINEZOLID. [Concomitant]
     Active Substance: LINEZOLID
     Indication: PNEUMONIA
     Route: 042
  12. TOBRAMYCIN. [Concomitant]
     Active Substance: TOBRAMYCIN
     Indication: PNEUMONIA
  13. SILYMARIN [Concomitant]
     Active Substance: DIETARY SUPPLEMENT\HERBALS\MILK THISTLE
  14. PHENYTOIN. [Suspect]
     Active Substance: PHENYTOIN
     Dosage: 750.0MG UNKNOWN
     Route: 065
  15. QUETIAPINE. [Suspect]
     Active Substance: QUETIAPINE
     Route: 048
  16. PHENYTOIN. [Suspect]
     Active Substance: PHENYTOIN
     Dosage: 100.0MG UNKNOWN
     Route: 065
  17. MIDAZOLAM. [Concomitant]
     Active Substance: MIDAZOLAM
  18. CEFTAZIDIME. [Concomitant]
     Active Substance: CEFTAZIDIME
     Indication: PNEUMONIA
     Route: 042

REACTIONS (1)
  - Drug reaction with eosinophilia and systemic symptoms [Recovered/Resolved]
